FAERS Safety Report 9312183 (Version 1)
Quarter: 2013Q2

REPORT INFORMATION
  Report Type: Spontaneous
  Country: BR (occurrence: BR)
  Receive Date: 20130528
  Receipt Date: 20130528
  Transmission Date: 20140414
  Serious: Yes (Death)
  Sender: FDA-Public Use
  Company Number: BR-ASTRAZENECA-2013SE36454

PATIENT
  Sex: Female

DRUGS (2)
  1. NEXIUM [Suspect]
     Indication: ABDOMINAL PAIN UPPER
     Route: 048
     Dates: start: 2011
  2. NEXIUM [Suspect]
     Indication: DYSPEPSIA
     Route: 048
     Dates: start: 2011

REACTIONS (4)
  - Infarction [Fatal]
  - Dyspepsia [Unknown]
  - Abdominal pain upper [Unknown]
  - Drug ineffective [Unknown]
